FAERS Safety Report 8450091-6 (Version None)
Quarter: 2012Q2

REPORT INFORMATION
  Report Type: 
  Country: None (occurrence: None)
  Receive Date: 20120620
  Receipt Date: 20120608
  Transmission Date: 20120825
  Serious: Yes (Other)
  Sender: FDA-Public Use
  Company Number: US-SANOFI-AVENTIS-2012SA041755

PATIENT

DRUGS (1)
  1. APIDRA [Suspect]
     Route: 058

REACTIONS (1)
  - INFUSION SITE INFECTION [None]
